FAERS Safety Report 17819089 (Version 6)
Quarter: 2020Q2

REPORT INFORMATION
  Report Type: Spontaneous
  Country: US (occurrence: US)
  Receive Date: 20200523
  Receipt Date: 20200625
  Transmission Date: 20200714
  Serious: Yes (Other)
  Sender: FDA-Public Use
  Company Number: NVSC2020US136684

PATIENT
  Age: 88 Year
  Sex: Female

DRUGS (2)
  1. BEOVU [Suspect]
     Active Substance: BROLUCIZUMAB-DBLL
     Dosage: EVERY 12 WEEKS
     Route: 031
     Dates: start: 20200508
  2. BEOVU [Suspect]
     Active Substance: BROLUCIZUMAB-DBLL
     Indication: AGE-RELATED MACULAR DEGENERATION
     Dosage: 6 MG (EVERY 12 WEEKS)
     Route: 031
     Dates: start: 20200214

REACTIONS (13)
  - Vitritis [Recovered/Resolved]
  - Visual acuity reduced [Unknown]
  - Vitreous floaters [Recovered/Resolved]
  - Systemic lupus erythematosus [Unknown]
  - Subretinal fluid [Recovering/Resolving]
  - Disease recurrence [Unknown]
  - Periphlebitis [Unknown]
  - Anterior chamber cell [Unknown]
  - Retinal haemorrhage [Unknown]
  - Uveitis [Recovered/Resolved]
  - Eye inflammation [Unknown]
  - Keratic precipitates [Recovered/Resolved]
  - Vitreal cells [Unknown]

NARRATIVE: CASE EVENT DATE: 20200508
